FAERS Safety Report 6030775-X (Version None)
Quarter: 2009Q1

REPORT INFORMATION
  Report Type: 
  Country: None (occurrence: None)
  Receive Date: 20090107
  Receipt Date: 20090105
  Transmission Date: 20090719
  Serious: Yes (Other)
  Sender: FDA-Public Use
  Company Number: PHHY2008CA33266

PATIENT

DRUGS (3)
  1. DIOVAN [Suspect]
     Indication: HYPERTENSION
     Dosage: 80 MG, QD
     Dates: start: 20080228
  2. ATENOLOL [Concomitant]
     Dosage: 50 MG ONCE DAILY
     Dates: start: 20081001
  3. ASPIRIN [Concomitant]
     Dosage: 8.1 MG ONCE DAILY
     Dates: start: 20081001

REACTIONS (2)
  - MYOCARDIAL INFARCTION [None]
  - TREATMENT NONCOMPLIANCE [None]
